FAERS Safety Report 6662580-5 (Version None)
Quarter: 2010Q1

REPORT INFORMATION
  Report Type: 
  Country: None (occurrence: None)
  Receive Date: 20100329
  Receipt Date: 20100312
  Transmission Date: 20100710
  Serious: Yes (Hospitalization, Other)
  Sender: FDA-Public Use
  Company Number: 2010000246

PATIENT
  Age: 62 Year
  Sex: Male
  Weight: 60.2 kg

DRUGS (18)
  1. ERLOTINIB HYDROCHLORIDE [Suspect]
     Indication: LUNG ADENOCARCINOMA
     Dosage: (150 MG, QD),ORAL (125 MG, QD),ORAL (100 MG, QD),ORAL (100 MG, QD),ORAL
     Route: 048
     Dates: start: 20081223, end: 20090309
  2. ERLOTINIB HYDROCHLORIDE [Suspect]
     Indication: LUNG ADENOCARCINOMA
     Dosage: (150 MG, QD),ORAL (125 MG, QD),ORAL (100 MG, QD),ORAL (100 MG, QD),ORAL
     Route: 048
     Dates: start: 20090602, end: 20091109
  3. ERLOTINIB HYDROCHLORIDE [Suspect]
     Indication: LUNG ADENOCARCINOMA
     Dosage: (150 MG, QD),ORAL (125 MG, QD),ORAL (100 MG, QD),ORAL (100 MG, QD),ORAL
     Route: 048
     Dates: start: 20080930, end: 20100204
  4. ERLOTINIB HYDROCHLORIDE [Suspect]
     Indication: LUNG ADENOCARCINOMA
     Dosage: (150 MG, QD),ORAL (125 MG, QD),ORAL (100 MG, QD),ORAL (100 MG, QD),ORAL
     Route: 048
     Dates: start: 20100113, end: 20100204
  5. MAGNEVIST [Suspect]
     Indication: DRUG USE FOR UNKNOWN INDICATION
     Dosage: INTRAVENOUS
     Route: 042
  6. ALDACTONE [Suspect]
     Indication: HYPERTENSION
     Dosage: (25 MG, QD),ORAL
     Route: 048
  7. LASIX [Suspect]
     Indication: HYPERTENSION
     Dosage: (40 MG, QD),ORAL
     Route: 048
  8. LOXONIN (LOXOPROFEN SODIUM) [Suspect]
     Indication: DRUG USE FOR UNKNOWN INDICATION
     Dosage: (180 MG, QD),ORAL
     Route: 048
     Dates: start: 20081215
  9. ZOMETA [Suspect]
     Indication: DRUG USE FOR UNKNOWN INDICATION
     Dosage: (4 MG),INTRAVENOUS DRIP
     Route: 041
     Dates: start: 20090406
  10. DECADRON [Suspect]
     Indication: DRUG USE FOR UNKNOWN INDICATION
     Dosage: ORAL
     Route: 048
  11. CYTOTEC [Concomitant]
  12. MAGNESIUM OXIDE (MAGNESIUM OXIDE) [Concomitant]
  13. MUCOSTA (REBAMIPIDE) [Concomitant]
  14. TORSEMIDE [Concomitant]
  15. OXYCONTIN [Concomitant]
  16. NOVOLIN R [Concomitant]
  17. MUCOSOLVAN (AMBROXOL HYDROCHLORIDE) [Concomitant]
  18. FLOMOX (CEFCAPENE PIVOXIL HYDROCHLORIDE) [Concomitant]

REACTIONS (7)
  - ANAEMIA [None]
  - ANAPHYLACTIC REACTION [None]
  - GASTROINTESTINAL HAEMORRHAGE [None]
  - LEUKOENCEPHALOPATHY [None]
  - LOSS OF CONSCIOUSNESS [None]
  - MELAENA [None]
  - OCCULT BLOOD POSITIVE [None]
